FAERS Safety Report 25041632 (Version 1)
Quarter: 2025Q1

REPORT INFORMATION
  Report Type: Spontaneous
  Country: CN (occurrence: CN)
  Receive Date: 20250305
  Receipt Date: 20250305
  Transmission Date: 20250409
  Serious: Yes (Other)
  Sender: FRESENIUS KABI
  Company Number: CN-FreseniusKabi-FK202503393

PATIENT
  Age: 78 Year
  Sex: Male
  Weight: 50 kg

DRUGS (1)
  1. EGG PHOSPHOLIPIDS\GLYCERIN\MEDIUM-CHAIN TRIGLYCERIDES\SOYBEAN OIL [Suspect]
     Active Substance: EGG PHOSPHOLIPIDS\GLYCERIN\MEDIUM-CHAIN TRIGLYCERIDES\SOYBEAN OIL
     Indication: Nutritional supplementation
     Dosage: THERAPY START TIME: 15:20?FOA-INJECTION
     Route: 041
     Dates: start: 20250215, end: 20250215

REACTIONS (2)
  - Temperature intolerance [Recovered/Resolved]
  - Chills [Recovered/Resolved]

NARRATIVE: CASE EVENT DATE: 20250215
